APPROVED DRUG PRODUCT: RETIN-A MICRO
Active Ingredient: TRETINOIN
Strength: 0.04%
Dosage Form/Route: GEL;TOPICAL
Application: N020475 | Product #002
Applicant: BAUSCH HEALTH US LLC
Approved: May 10, 2002 | RLD: Yes | RS: Yes | Type: RX